FAERS Safety Report 18942403 (Version 1)
Quarter: 2021Q1

REPORT INFORMATION
  Report Type: Report from Study
  Country: US (occurrence: US)
  Receive Date: 20210225
  Receipt Date: 20210225
  Transmission Date: 20210420
  Serious: No
  Sender: FDA-Public Use
  Company Number: US-LUNDBECK-DKLU3028240

PATIENT
  Age: 59 Year
  Sex: Female

DRUGS (2)
  1. UBRELVY [Concomitant]
     Active Substance: UBROGEPANT
     Indication: MIGRAINE
     Route: 065
  2. VYEPTI [Suspect]
     Active Substance: EPTINEZUMAB-JJMR
     Indication: MIGRAINE
     Route: 041
     Dates: start: 20201112

REACTIONS (4)
  - Migraine [Unknown]
  - Somnolence [Recovered/Resolved]
  - Feeling abnormal [Recovered/Resolved]
  - Memory impairment [Unknown]

NARRATIVE: CASE EVENT DATE: 20201112
